FAERS Safety Report 9565700 (Version 1)
Quarter: 2013Q3

REPORT INFORMATION
  Report Type: Spontaneous
  Country: US (occurrence: US)
  Receive Date: 20130930
  Receipt Date: 20130930
  Transmission Date: 20140515
  Serious: Yes (Other)
  Sender: FDA-Public Use
  Company Number: US-GLAXOSMITHKLINE-A1042707A

PATIENT
  Age: 27 Year
  Sex: Female

DRUGS (16)
  1. BENLYSTA [Suspect]
     Indication: SYSTEMIC LUPUS ERYTHEMATOSUS
     Dosage: 600MG CYCLIC
     Route: 042
     Dates: start: 201210
  2. PLAQUENIL [Concomitant]
  3. OCELLA [Concomitant]
  4. PREDNISONE [Concomitant]
  5. CYMBALTA [Concomitant]
  6. OXYCODONE [Concomitant]
  7. AMITRIPTYLINE [Concomitant]
  8. VITAMIN B [Concomitant]
  9. BACLOFEN [Concomitant]
  10. ZOFRAN [Concomitant]
  11. VITAMIN D [Concomitant]
  12. POTASSIUM [Concomitant]
  13. BIOTIN [Concomitant]
  14. FLAXSEED [Concomitant]
  15. OMEGA 3 [Concomitant]
  16. VITAMIN B 12 [Concomitant]

REACTIONS (6)
  - Systemic lupus erythematosus [Recovering/Resolving]
  - Insomnia [Recovering/Resolving]
  - Fatigue [Recovering/Resolving]
  - Urinary tract infection [Recovering/Resolving]
  - Weight increased [Recovering/Resolving]
  - Drug ineffective [Recovering/Resolving]
